FAERS Safety Report 5837627-6 (Version None)
Quarter: 2008Q3

REPORT INFORMATION
  Report Type: 
  Country: None (occurrence: None)
  Receive Date: 20080807
  Receipt Date: 20080728
  Transmission Date: 20090109
  Serious: Yes (Other)
  Sender: FDA-Public Use
  Company Number: BR-PFIZER INC-2008064061

PATIENT
  Sex: Female
  Weight: 63 kg

DRUGS (4)
  1. DEPO-PROVERA SUSPENSION/INJ [Suspect]
     Indication: CONTRACEPTION
     Route: 030
     Dates: start: 19990101, end: 19990101
  2. DEPO-PROVERA SUSPENSION/INJ [Suspect]
     Route: 030
     Dates: start: 20030101, end: 20030101
  3. DEPO-PROVERA SUSPENSION/INJ [Suspect]
     Route: 030
     Dates: start: 20080629, end: 20080629
  4. RIVOTRIL [Concomitant]

REACTIONS (6)
  - AMENORRHOEA [None]
  - DYSPEPSIA [None]
  - METRORRHAGIA [None]
  - NAUSEA [None]
  - RENAL COLIC [None]
  - SOMNOLENCE [None]
